FAERS Safety Report 21217358 (Version 1)
Quarter: 2022Q3

REPORT INFORMATION
  Report Type: Spontaneous
  Country: US (occurrence: None)
  Receive Date: 20220816
  Receipt Date: 20220816
  Transmission Date: 20221027
  Serious: Yes (Other)
  Sender: FDA-Public Use
  Company Number: None

PATIENT
  Age: 47 Year
  Sex: Male
  Weight: 99 kg

DRUGS (3)
  1. TALTZ [Suspect]
     Active Substance: IXEKIZUMAB
     Indication: Psoriasis
     Dosage: OTHER FREQUENCY : INITIAL DOSE;?
     Route: 058
     Dates: start: 20220810
  2. hydrocortisone valerate oint 0.2% [Concomitant]
  3. prednisone tab 1 mg [Concomitant]

REACTIONS (3)
  - Wrong technique in device usage process [None]
  - Incorrect dosage administered [None]
  - Wrong technique in product usage process [None]

NARRATIVE: CASE EVENT DATE: 20220810
